FAERS Safety Report 4587064-X (Version None)
Quarter: 2005Q1

REPORT INFORMATION
  Report Type: 
  Country: None (occurrence: None)
  Receive Date: 20050218
  Receipt Date: 20050215
  Transmission Date: 20050727
  Serious: Yes (Other)
  Sender: FDA-Public Use
  Company Number: PHEH2005US02061

PATIENT
  Age: 73 Year
  Sex: Male

DRUGS (5)
  1. DIOVAN HCT [Suspect]
     Dosage: UNK, UNK
     Route: 048
     Dates: start: 20040101
  2. ANTIHYPERTENSIVES [Concomitant]
  3. ANXIOLYTICS [Concomitant]
  4. DIOVAN [Suspect]
     Indication: HYPERTENSION
     Dates: end: 20040101
  5. PLAVIX [Concomitant]

REACTIONS (1)
  - AMNESIA [None]
